FAERS Safety Report 7833434-3 (Version None)
Quarter: 2011Q4

REPORT INFORMATION
  Report Type: 
  Country: None (occurrence: None)
  Receive Date: 20111024
  Receipt Date: 20111010
  Transmission Date: 20120403
  Serious: Yes (Hospitalization, Other)
  Sender: FDA-Public Use
  Company Number: GB-MYLANLABS-2011S1021139

PATIENT
  Age: 56 Year
  Sex: Female
  Weight: 60 kg

DRUGS (1)
  1. VERAPAMIL [Suspect]
     Indication: PRODUCT USED FOR UNKNOWN INDICATION
     Route: 048

REACTIONS (10)
  - TOXICITY TO VARIOUS AGENTS [None]
  - ELECTROCARDIOGRAM PR PROLONGATION [None]
  - SOMNOLENCE [None]
  - HYPERGLYCAEMIA [None]
  - BRADYCARDIA [None]
  - HYPOTENSION [None]
  - EXTRASYSTOLES [None]
  - OVERDOSE [None]
  - DIZZINESS [None]
  - CONFUSIONAL STATE [None]
